FAERS Safety Report 4865784-7 (Version None)
Quarter: 2005Q4

REPORT INFORMATION
  Report Type: 
  Country: None (occurrence: None)
  Receive Date: 20051220
  Receipt Date: 20051212
  Transmission Date: 20060501
  Serious: Yes (Hospitalization)
  Sender: FDA-Public Use
  Company Number: 2005166848

PATIENT
  Age: 47 Year
  Sex: Female

DRUGS (4)
  1. FRAGMIN [Suspect]
     Indication: THROMBOSIS PROPHYLAXIS
     Dosage: 5000 UNIT UNKNOWN (1 IN 1 D), SUBCUTANEOUS
     Route: 058
     Dates: start: 20050313, end: 20050317
  2. GLYBURIDE [Concomitant]
  3. ATENOLOL [Concomitant]
  4. ORAL CONTRACEPTIVE NOS (ORAL CONTRACEPTIVE NOS) [Concomitant]

REACTIONS (3)
  - MUSCLE RIGIDITY [None]
  - OEDEMA PERIPHERAL [None]
  - PAIN IN EXTREMITY [None]
